FAERS Safety Report 18415411 (Version 3)
Quarter: 2025Q3

REPORT INFORMATION
  Report Type: Spontaneous
  Country: EU (occurrence: EU)
  Receive Date: 20201022
  Receipt Date: 20250820
  Transmission Date: 20251021
  Serious: Yes (Other)
  Sender: AUROBINDO
  Company Number: EU-CHEPLA-C20202986

PATIENT
  Age: 62 Year
  Sex: Female

DRUGS (11)
  1. BUPIVACAINE [Suspect]
     Active Substance: BUPIVACAINE
     Indication: Induction of anaesthesia
     Route: 008
  2. FENTANYL [Suspect]
     Active Substance: FENTANYL
     Indication: General anaesthesia
     Route: 008
  3. CEFAZOLIN [Suspect]
     Active Substance: CEFAZOLIN
     Indication: General anaesthesia
     Route: 008
  4. CEFAZOLIN [Suspect]
     Active Substance: CEFAZOLIN
     Indication: Induction of anaesthesia
     Route: 008
  5. DEXAMETHASONE [Suspect]
     Active Substance: DEXAMETHASONE
     Indication: General anaesthesia
     Route: 008
  6. DROPERIDOL [Suspect]
     Active Substance: DROPERIDOL
     Indication: Induction of anaesthesia
     Route: 008
  7. MIDAZOLAM [Suspect]
     Active Substance: MIDAZOLAM
     Indication: General anaesthesia
     Route: 065
  8. MIDAZOLAM [Suspect]
     Active Substance: MIDAZOLAM
     Route: 008
  9. PROPOFOL [Suspect]
     Active Substance: PROPOFOL
     Indication: General anaesthesia
     Route: 008
  10. ROCURONIUM [Suspect]
     Active Substance: ROCURONIUM BROMIDE
     Indication: General anaesthesia
     Route: 008
  11. SUFENTANIL [Suspect]
     Active Substance: SUFENTANIL
     Indication: Induction of anaesthesia
     Route: 008

REACTIONS (7)
  - Haemodynamic instability [Recovered/Resolved]
  - Bradycardia [Recovered/Resolved]
  - Anaphylactic reaction [Recovered/Resolved]
  - Altered state of consciousness [Recovered/Resolved]
  - Cardiac arrest [Recovered/Resolved]
  - Hypoxia [Recovered/Resolved]
  - Product use in unapproved indication [Recovered/Resolved]
